FAERS Safety Report 6173601-0 (Version None)
Quarter: 2009Q2

REPORT INFORMATION
  Report Type: 
  Country: None (occurrence: None)
  Receive Date: 20090430
  Receipt Date: 20090427
  Transmission Date: 20091009
  Serious: Yes (Hospitalization, Other)
  Sender: FDA-Public Use
  Company Number: US-BAYER-200918861NA

PATIENT
  Age: 72 Year
  Sex: Female

DRUGS (1)
  1. NEXAVAR [Suspect]
     Indication: HEPATIC NEOPLASM MALIGNANT
     Dates: start: 20081101, end: 20090415

REACTIONS (3)
  - ANASTOMOTIC HAEMORRHAGE [None]
  - ANASTOMOTIC LEAK [None]
  - HAEMOGLOBIN DECREASED [None]
